FAERS Safety Report 13461180 (Version 1)
Quarter: 2017Q2

REPORT INFORMATION
  Report Type: Spontaneous
  Country: None (occurrence: US)
  Receive Date: 20170418
  Receipt Date: 20170418
  Transmission Date: 20170830
  Serious: No
  Sender: FDA-Public Use
  Company Number: None

PATIENT
  Age: 72 Year
  Sex: Female

DRUGS (1)
  1. PROLIA [Suspect]
     Active Substance: DENOSUMAB
     Dosage: 60MG/ML ONCE EVERY 6 MONTHS SUBCUTANEOUSLY
     Route: 058
     Dates: start: 20140901

REACTIONS (4)
  - Pain in extremity [None]
  - Productive cough [None]
  - Bronchitis [None]
  - Arthralgia [None]

NARRATIVE: CASE EVENT DATE: 20160401
